FAERS Safety Report 10223207 (Version 1)
Quarter: 2014Q2

REPORT INFORMATION
  Report Type: Spontaneous
  Country: US (occurrence: None)
  Receive Date: 20140606
  Receipt Date: 20140606
  Transmission Date: 20141212
  Serious: Yes (Life-Threatening)
  Sender: FDA-Public Use
  Company Number: None

PATIENT
  Age: 46 Year
  Sex: Female
  Weight: 67.5 kg

DRUGS (2)
  1. ONDANSETRON [Suspect]
     Indication: NAUSEA
     Route: 042
     Dates: start: 20140528, end: 20140528
  2. DILAUDID [Concomitant]

REACTIONS (4)
  - Pharyngeal oedema [None]
  - Eye swelling [None]
  - Flushing [None]
  - No therapeutic response [None]
